FAERS Safety Report 10645293 (Version 1)
Quarter: 2014Q4

REPORT INFORMATION
  Report Type: Spontaneous
  Country: US (occurrence: None)
  Receive Date: 20141209
  Receipt Date: 20141209
  Transmission Date: 20150529
  Serious: Yes (Hospitalization)
  Sender: FDA-Public Use
  Company Number: FK201405835

PATIENT
  Age: 56 Year
  Sex: Male

DRUGS (15)
  1. CYCLOPHOSPHAMIDE (MANUFACTURER UNKNOWN) (CYCLOPHOSPHAMIDE) (CYCLOPHOSPHADMIDE) [Suspect]
     Active Substance: CYCLOPHOSPHAMIDE
     Indication: PLASMA CELL MYELOMA
     Dates: start: 199704
  2. CARFILZOMIB [Concomitant]
     Active Substance: CARFILZOMIB
  3. THALIDOMIDE (MANUFACTURER UNKNOWN) (THALIDOMIDE) (THALIDOMIDE) [Suspect]
     Active Substance: THALIDOMIDE
     Indication: PLASMA CELL MYELOMA
     Dates: start: 200609
  4. LENALIDOMIDE (LENALIDOMIDE) (LENALIDOMIDE) [Suspect]
     Active Substance: LENALIDOMIDE
     Indication: PLASMA CELL MYELOMA
     Dates: start: 200803
  5. BORTEZOMIB (BORTEZONIB) (BORTEZONIB) [Suspect]
     Active Substance: BORTEZOMIB
     Indication: PLASMA CELL MYELOMA
     Dates: start: 200803
  6. MESNA (MANUFACTURER UNKNOWN) (MESNA) (MESNA) [Suspect]
     Active Substance: MESNA
     Indication: PLASMA CELL MYELOMA
     Dates: start: 201204
  7. DOXORUBICIN (MANUFACTURER UNKNOWN) (DOXOROUBICIN) [Suspect]
     Active Substance: DOXORUBICIN
     Indication: PLASMA CELL MYELOMA
     Dates: start: 200609
  8. VORINOSTAT [Concomitant]
     Active Substance: VORINOSTAT
  9. CISPLATIN (MANUFACTURER UNKNOWN) (CISPLATIN) (CISPLATIN) [Suspect]
     Active Substance: CISPLATIN
     Indication: PLASMA CELL MYELOMA
     Dates: start: 199704
  10. ETOPOSIDE (MANUFACTURER UNKNOWN) (ETOPOSIDE) (ETOPOSIDE) [Suspect]
     Active Substance: ETOPOSIDE
     Indication: PLASMA CELL MYELOMA
     Dates: start: 199704
  11. MELPHALAN (MELPHALAN) (MELPHALAN) [Suspect]
     Active Substance: MELPHALAN
     Indication: PLASMA CELL MYELOMA
     Dates: start: 199704
  12. DEXAMETHASONE INJECTION (DEXAMETHASONE SODIUM PHOSPHATE) (DEXAMETHASONE SODIUM PHOSPHATE) [Suspect]
     Active Substance: DEXAMETHASONE
     Indication: PLASMA CELL MYELOMA
     Dates: start: 199704
  13. POMALIDOMIDE [Concomitant]
     Active Substance: POMALIDOMIDE
  14. VINCRISTINE [Concomitant]
     Active Substance: VINCRISTINE
  15. CYTARABINE (MANUFACTURER UNKNOWN) (CYTARABINE) (CYTARABINE) [Suspect]
     Active Substance: CYTARABINE
     Indication: PLASMA CELL MYELOMA
     Dates: start: 200609

REACTIONS (9)
  - Metabolic acidosis [None]
  - Staphylococcal bacteraemia [None]
  - Dyspnoea exertional [None]
  - Acute kidney injury [None]
  - Hepatitis B [None]
  - Pulseless electrical activity [None]
  - Hypoxic-ischaemic encephalopathy [None]
  - Pulmonary hypertension [None]
  - Hypotension [None]
